FAERS Safety Report 12709331 (Version 1)
Quarter: 2016Q3

REPORT INFORMATION
  Report Type: Spontaneous
  Country: US (occurrence: None)
  Receive Date: 20160901
  Receipt Date: 20160901
  Transmission Date: 20161109
  Serious: Yes (Other)
  Sender: FDA-Public Use
  Company Number: None

PATIENT
  Age: 29 Year
  Sex: Female
  Weight: 63.5 kg

DRUGS (1)
  1. VIIBRYD [Suspect]
     Active Substance: VILAZODONE HYDROCHLORIDE
     Indication: MENTAL DISORDER
     Dosage: 1 TABLET(S) IN THE MORNING TAKEN BY MOUTH
     Route: 048

REACTIONS (8)
  - Hyperhidrosis [None]
  - Anxiety [None]
  - Emotional distress [None]
  - Pain [None]
  - Paraesthesia [None]
  - Initial insomnia [None]
  - Withdrawal syndrome [None]
  - Insomnia [None]

NARRATIVE: CASE EVENT DATE: 20160801
